FAERS Safety Report 11061240 (Version 2)
Quarter: 2015Q2

REPORT INFORMATION
  Report Type: Spontaneous
  Country: US (occurrence: US)
  Receive Date: 20150424
  Receipt Date: 20150508
  Transmission Date: 20150821
  Serious: No
  Sender: FDA-Public Use
  Company Number: US-009507513-1504USA017934

PATIENT
  Age: 49 Year
  Sex: Female

DRUGS (3)
  1. ASMANEX [Suspect]
     Active Substance: MOMETASONE FUROATE
     Dosage: 1 SPRAY PER DAY
     Route: 055
  2. COZAAR [Concomitant]
     Active Substance: LOSARTAN POTASSIUM
  3. ZYRTEC [Concomitant]
     Active Substance: CETIRIZINE HYDROCHLORIDE

REACTIONS (2)
  - Asthma [Unknown]
  - Product quality issue [Unknown]

NARRATIVE: CASE EVENT DATE: 201504
